FAERS Safety Report 12799749 (Version 1)
Quarter: 2016Q3

REPORT INFORMATION
  Report Type: Report from Study
  Country: US (occurrence: US)
  Receive Date: 20160930
  Receipt Date: 20160930
  Transmission Date: 20161109
  Serious: Yes (Other)
  Sender: FDA-Public Use
  Company Number: US-BAXALTA-2016BLT006926

PATIENT
  Age: 62 Year
  Sex: Female

DRUGS (2)
  1. HYQVIA [Suspect]
     Active Substance: HUMAN IMMUNOGLOBULIN G\HYALURONIDASE RECOMBINANT HUMAN
     Indication: PRIMARY IMMUNODEFICIENCY SYNDROME
     Dosage: 40 G, 1X A MONTH
     Route: 058
     Dates: start: 201602
  2. HYQVIA [Suspect]
     Active Substance: HUMAN IMMUNOGLOBULIN G\HYALURONIDASE RECOMBINANT HUMAN
     Dosage: RAMP UP DOSING
     Route: 058
     Dates: start: 201602

REACTIONS (3)
  - Upper respiratory tract infection [Recovering/Resolving]
  - Drug ineffective [Recovering/Resolving]
  - Hair texture abnormal [Recovering/Resolving]

NARRATIVE: CASE EVENT DATE: 20160901
